FAERS Safety Report 5482685-4 (Version None)
Quarter: 2007Q4

REPORT INFORMATION
  Report Type: 
  Country: None (occurrence: None)
  Receive Date: 20071011
  Receipt Date: 20071008
  Transmission Date: 20080405
  Serious: Yes (Other)
  Sender: FDA-Public Use
  Company Number: GB-JNJFOC-20071002533

PATIENT
  Sex: Male

DRUGS (2)
  1. RISPERDAL CONSTA [Suspect]
     Indication: DRUG USE FOR UNKNOWN INDICATION
     Route: 030
  2. OLANZAPINE [Concomitant]
     Indication: DRUG USE FOR UNKNOWN INDICATION
     Route: 065

REACTIONS (3)
  - BLOOD IMMUNOGLOBULIN G DECREASED [None]
  - BLOOD PROLACTIN INCREASED [None]
  - OVERDOSE [None]
